FAERS Safety Report 5793576-3 (Version None)
Quarter: 2008Q2

REPORT INFORMATION
  Report Type: 
  Country: None (occurrence: None)
  Receive Date: 20080627
  Receipt Date: 20070511
  Transmission Date: 20081010
  Serious: No
  Sender: FDA-Public Use
  Company Number: A0651011A

PATIENT

DRUGS (1)
  1. ZINACEF [Suspect]
     Indication: INFECTION
     Route: 042

REACTIONS (2)
  - EXTRAVASATION [None]
  - SKIN IRRITATION [None]
